FAERS Safety Report 6820991-9 (Version None)
Quarter: 2010Q3

REPORT INFORMATION
  Report Type: 
  Country: None (occurrence: None)
  Receive Date: 20100707
  Receipt Date: 20071213
  Transmission Date: 20110219
  Serious: No
  Sender: FDA-Public Use
  Company Number: US-PFIZER INC-2007063223

PATIENT
  Sex: Female
  Weight: 76.84 kg

DRUGS (6)
  1. ZOLOFT [Suspect]
     Indication: DEPRESSION
     Route: 048
  2. SERTRALINE HCL [Suspect]
     Indication: DEPRESSION
     Dates: start: 20070601
  3. SERTRALINE HCL [Suspect]
     Indication: ANXIETY
  4. CYCLO-PROGYNOVA [Concomitant]
     Route: 048
  5. ALPRAZOLAM [Concomitant]
     Dates: start: 20070301
  6. ZOLPIDEM [Concomitant]

REACTIONS (1)
  - DRUG INEFFECTIVE [None]
